FAERS Safety Report 24390147 (Version 1)
Quarter: 2024Q4

REPORT INFORMATION
  Report Type: Report from Study
  Country: CA (occurrence: CA)
  Receive Date: 20241003
  Receipt Date: 20241003
  Transmission Date: 20250115
  Serious: Yes (Hospitalization)
  Sender: GILEAD
  Company Number: CA-GILEAD-2024-0689588

PATIENT
  Sex: Female

DRUGS (1)
  1. TENOFOVIR DISOPROXIL FUMARATE [Suspect]
     Active Substance: TENOFOVIR DISOPROXIL FUMARATE
     Indication: Hepatitis B
     Dosage: 300MG TAB - TAKE 1 TABLET ONCE DAILY BY MOUTH WITH OR WITHOUT FOOD
     Route: 048

REACTIONS (3)
  - Liver disorder [Unknown]
  - Rash macular [Unknown]
  - Product dose omission issue [Unknown]
